FAERS Safety Report 7262371-0 (Version None)
Quarter: 2011Q1

REPORT INFORMATION
  Report Type: 
  Country: None (occurrence: None)
  Receive Date: 20110130
  Receipt Date: 20101201
  Transmission Date: 20110831
  Serious: Yes (Other)
  Sender: FDA-Public Use
  Company Number: US-ABBOTT-10P-163-0685909-00

PATIENT
  Age: 75 Year
  Sex: Male

DRUGS (4)
  1. MULTIPLE UNLISTED MEDICATIONS [Concomitant]
     Indication: DIABETES MELLITUS
  2. MULTIPLE UNLISTED MEDICATIONS [Concomitant]
     Indication: CARDIAC DISORDER
  3. HUMIRA [Suspect]
     Indication: RHEUMATOID ARTHRITIS
     Route: 058
     Dates: start: 20100909, end: 20100930
  4. MULTIPLE UNLISTED MEDICATIONS [Concomitant]
     Indication: DEMENTIA

REACTIONS (5)
  - SYNCOPE [None]
  - DEVICE MALFUNCTION [None]
  - DEMYELINATION [None]
  - DRUG DOSE OMISSION [None]
  - FATIGUE [None]
